FAERS Safety Report 20220112 (Version 1)
Quarter: 2021Q4

REPORT INFORMATION
  Report Type: Report from Study
  Country: IE (occurrence: IE)
  Receive Date: 20211222
  Receipt Date: 20211222
  Transmission Date: 20220303
  Serious: Yes (Death, Hospitalization)
  Sender: FDA-Public Use
  Company Number: IE-JNJFOC-20211046047

PATIENT
  Age: 87 Year
  Sex: Male

DRUGS (11)
  1. ZYTIGA [Suspect]
     Active Substance: ABIRATERONE ACETATE
     Indication: Prostate cancer
     Route: 048
     Dates: start: 20210112
  2. ASPIRIN [Concomitant]
     Active Substance: ASPIRIN
     Route: 050
  3. ISOMEL [Concomitant]
     Route: 050
  4. LOSARTAN [Concomitant]
     Active Substance: LOSARTAN
     Route: 050
  5. PHENERGAN [Concomitant]
     Active Substance: PROMETHAZINE HYDROCHLORIDE
     Route: 050
  6. ELIQUIS [Concomitant]
     Active Substance: APIXABAN
     Route: 050
  7. ATORVASTATIN [Concomitant]
     Active Substance: ATORVASTATIN
     Route: 050
  8. CHOLECALCIFEROL [Concomitant]
     Active Substance: CHOLECALCIFEROL
     Route: 050
  9. ESOMEPRAZOLE [Concomitant]
     Active Substance: ESOMEPRAZOLE
     Route: 050
  10. PREDNISOLONE [Concomitant]
     Active Substance: PREDNISOLONE
     Route: 050
  11. TRELEGY ELLIPTA [Concomitant]
     Active Substance: FLUTICASONE FUROATE\UMECLIDINIUM BROMIDE\VILANTEROL TRIFENATATE
     Route: 050

REACTIONS (7)
  - Death [Fatal]
  - Urinary tract infection [Recovered/Resolved]
  - Lower respiratory tract infection [Recovered/Resolved]
  - Hospitalisation [Recovered/Resolved]
  - Physiotherapy [Recovered/Resolved]
  - Oxygen saturation decreased [Unknown]
  - Malaise [Not Recovered/Not Resolved]

NARRATIVE: CASE EVENT DATE: 20211021
